FAERS Safety Report 11669633 (Version 6)
Quarter: 2015Q4

REPORT INFORMATION
  Report Type: Spontaneous
  Country: JP (occurrence: JP)
  Receive Date: 20151027
  Receipt Date: 20151223
  Transmission Date: 20160304
  Serious: Yes (Death)
  Sender: FDA-Public Use
  Company Number: PHJP2015JP018621

PATIENT
  Age: 51 Year
  Sex: Male

DRUGS (18)
  1. FEBURIC [Concomitant]
     Active Substance: FEBUXOSTAT
     Indication: PRODUCT USED FOR UNKNOWN INDICATION
     Dosage: 40 MG, UNK
     Route: 048
  2. FEBURIC [Concomitant]
     Active Substance: FEBUXOSTAT
     Dosage: 20 MG, UNK
     Route: 048
     Dates: start: 20141011, end: 20141015
  3. PRIMPERAN [Concomitant]
     Active Substance: METOCLOPRAMIDE HYDROCHLORIDE
     Indication: NAUSEA
     Dosage: UNK, TID
     Route: 065
  4. SENNOSIDE [Concomitant]
     Active Substance: SENNOSIDES
     Indication: CONSTIPATION
     Dosage: 1 DF, BID
     Route: 048
  5. GLIVEC [Suspect]
     Active Substance: IMATINIB MESYLATE
     Indication: ACUTE LYMPHOCYTIC LEUKAEMIA
     Dosage: 600 MG, UNK
     Route: 048
     Dates: start: 20141005, end: 20141015
  6. UROMITEXAN [Concomitant]
     Active Substance: MESNA
     Indication: PRODUCT USED FOR UNKNOWN INDICATION
     Dosage: 500 MG, UNK
     Route: 042
     Dates: start: 20141002, end: 20141004
  7. DOXORUBICIN [Suspect]
     Active Substance: DOXORUBICIN
     Indication: ACUTE LYMPHOCYTIC LEUKAEMIA
     Dosage: UNK
     Route: 065
     Dates: start: 20141002
  8. BAKTAR [Concomitant]
     Active Substance: SULFAMETHOXAZOLE\TRIMETHOPRIM
     Indication: PRODUCT USED FOR UNKNOWN INDICATION
     Dosage: 1 DF, UNK
     Route: 065
  9. LENDORMIN [Concomitant]
     Active Substance: BROTIZOLAM
     Indication: INSOMNIA
     Dosage: 0.25 MG, QD
     Route: 048
  10. ENDOXAN [Concomitant]
     Active Substance: CYCLOPHOSPHAMIDE
     Indication: PRODUCT USED FOR UNKNOWN INDICATION
     Dosage: 1000 MG, UNK
     Route: 042
     Dates: start: 20141002, end: 20141004
  11. TAKEPRON [Concomitant]
     Active Substance: LANSOPRAZOLE
     Indication: PRODUCT USED FOR UNKNOWN INDICATION
     Dosage: 15 MG, UNK
     Route: 048
  12. CYCLOPHOSPHAMIDE. [Suspect]
     Active Substance: CYCLOPHOSPHAMIDE
     Indication: ACUTE LYMPHOCYTIC LEUKAEMIA
     Dosage: UNK
     Route: 065
     Dates: start: 20141002
  13. FLUCONAZOLE. [Concomitant]
     Active Substance: FLUCONAZOLE
     Indication: PRODUCT USED FOR UNKNOWN INDICATION
     Dosage: 200 MG, UNK
     Route: 048
  14. VINCRISTINE [Suspect]
     Active Substance: VINCRISTINE
     Indication: ACUTE LYMPHOCYTIC LEUKAEMIA
     Dosage: UNK
     Route: 065
     Dates: start: 20141002
  15. DEXAMETHASONE. [Suspect]
     Active Substance: DEXAMETHASONE
     Indication: ACUTE LYMPHOCYTIC LEUKAEMIA
     Dosage: UNK
     Route: 065
     Dates: start: 20141002
  16. SODIUM CHLORIDE. [Concomitant]
     Active Substance: SODIUM CHLORIDE
     Indication: PRODUCT USED FOR UNKNOWN INDICATION
     Dosage: 1 DF, UNK
     Route: 041
  17. MAGLAX [Concomitant]
     Active Substance: MAGNESIUM OXIDE
     Indication: CONSTIPATION
     Dosage: 750 MG, TID
     Route: 048
  18. LAXOBERON [Concomitant]
     Active Substance: SODIUM PICOSULFATE
     Indication: CONSTIPATION
     Dosage: 10 DRP, UNK
     Route: 065
     Dates: start: 20141008

REACTIONS (7)
  - Pneumatosis intestinalis [Fatal]
  - Circulatory collapse [Fatal]
  - Abdominal pain [Fatal]
  - Septic shock [Fatal]
  - Intestinal cyst [Fatal]
  - Bacillus infection [Fatal]
  - Pyrexia [Fatal]

NARRATIVE: CASE EVENT DATE: 20141015
